FAERS Safety Report 9369650 (Version 1)
Quarter: 2013Q2

REPORT INFORMATION
  Report Type: Spontaneous
  Country: US (occurrence: None)
  Receive Date: 20130625
  Receipt Date: 20130625
  Transmission Date: 20140414
  Serious: Yes (Other)
  Sender: FDA-Public Use
  Company Number: None

PATIENT
  Age: 50 Year
  Sex: Male
  Weight: 106.6 kg

DRUGS (2)
  1. QUINAPRIL [Suspect]
     Indication: HYPERTENSION
     Route: 048
     Dates: start: 20130619, end: 20130621
  2. SERTRALINE HCL [Suspect]
     Route: 048
     Dates: start: 20130619, end: 20130621

REACTIONS (2)
  - Product commingling [None]
  - Feeling abnormal [None]
